FAERS Safety Report 6148258-5 (Version None)
Quarter: 2009Q2

REPORT INFORMATION
  Report Type: 
  Country: None (occurrence: None)
  Receive Date: 20090408
  Receipt Date: 20090318
  Transmission Date: 20091009
  Serious: Yes (Other)
  Sender: FDA-Public Use
  Company Number: US-BAYER-200917185GPV

PATIENT
  Age: 36 Year
  Sex: Female

DRUGS (3)
  1. CAMPATH [Suspect]
     Indication: MULTIPLE SCLEROSIS
     Route: 042
     Dates: start: 20030804, end: 20030808
  2. CAMPATH [Suspect]
     Route: 042
     Dates: start: 20040726, end: 20040728
  3. CAMPATH [Suspect]
     Route: 042
     Dates: start: 20050914, end: 20050916

REACTIONS (1)
  - BASAL CELL CARCINOMA [None]
